FAERS Safety Report 5187900-2 (Version None)
Quarter: 2006Q4

REPORT INFORMATION
  Report Type: 
  Country: None (occurrence: None)
  Receive Date: 20061221
  Receipt Date: 20061005
  Transmission Date: 20070319
  Serious: Yes (Other)
  Sender: FDA-Public Use
  Company Number: CA-AMGEN-US195953

PATIENT
  Sex: Male

DRUGS (6)
  1. ENBREL [Suspect]
     Indication: PSORIATIC ARTHROPATHY
     Route: 058
     Dates: start: 20020501, end: 20060524
  2. NAPROSYN [Concomitant]
     Route: 065
     Dates: start: 19990917, end: 20060518
  3. CYTOTEC [Concomitant]
     Route: 065
     Dates: start: 19970509, end: 20060518
  4. SULFASALAZINE [Concomitant]
     Route: 065
     Dates: start: 20000508, end: 20040101
  5. PLAQUENIL [Concomitant]
     Route: 065
     Dates: start: 19990521, end: 19990805
  6. METHOTREXATE [Concomitant]
     Route: 065
     Dates: start: 19990805, end: 20010618

REACTIONS (5)
  - COUGH [None]
  - MALAISE [None]
  - NIGHT SWEATS [None]
  - POLYP [None]
  - RETROPERITONEAL FIBROSIS [None]
